FAERS Safety Report 4848333-9 (Version None)
Quarter: 2005Q4

REPORT INFORMATION
  Report Type: 
  Country: None (occurrence: None)
  Receive Date: 20051208
  Receipt Date: 20051006
  Transmission Date: 20060501
  Serious: Yes (Hospitalization)
  Sender: FDA-Public Use
  Company Number: US-MERCK-0510USA05994

PATIENT
  Age: 68 Year
  Sex: Female
  Weight: 67 kg

DRUGS (15)
  1. VIOXX [Suspect]
     Indication: ARTHRALGIA
     Route: 048
     Dates: start: 20010401, end: 20020501
  2. VIOXX [Suspect]
     Route: 048
     Dates: start: 20010401, end: 20020501
  3. VIOXX [Suspect]
     Route: 048
     Dates: start: 20020101, end: 20040901
  4. VIOXX [Suspect]
     Route: 048
     Dates: start: 20020101, end: 20040901
  5. ASPIRIN [Concomitant]
     Route: 048
  6. CENTRUM [Concomitant]
     Route: 048
  7. EXTRA STRENGTH TYLENOL [Concomitant]
     Route: 048
  8. CALTRATE 600 PLUS VITAMIN D [Concomitant]
     Route: 048
  9. VITA C [Concomitant]
     Route: 065
  10. VICODIN [Concomitant]
     Route: 065
  11. MAXZIDE [Concomitant]
     Route: 065
  12. SIMVASTATIN [Concomitant]
     Route: 065
  13. LISINOPRIL [Concomitant]
     Route: 048
  14. OMEPRAZOLE [Concomitant]
     Route: 048
  15. [THERAPY UNSPECIFIED] [Concomitant]
     Route: 048

REACTIONS (18)
  - ADVERSE EVENT [None]
  - ANGINA UNSTABLE [None]
  - AORTIC ARTERIOSCLEROSIS [None]
  - BLOOD PRESSURE INADEQUATELY CONTROLLED [None]
  - CARDIAC DISORDER [None]
  - CHEST PAIN [None]
  - CHOLELITHIASIS [None]
  - CORONARY ARTERY DISEASE [None]
  - DEPRESSION [None]
  - DILATATION ATRIAL [None]
  - HYPERTENSION [None]
  - HYPERTRIGLYCERIDAEMIA [None]
  - INJURY [None]
  - INSOMNIA [None]
  - INTERVERTEBRAL DISC DEGENERATION [None]
  - MITRAL VALVE INCOMPETENCE [None]
  - SPINAL COLUMN STENOSIS [None]
  - TRICUSPID VALVE INCOMPETENCE [None]
